FAERS Safety Report 13515424 (Version 1)
Quarter: 2017Q2

REPORT INFORMATION
  Report Type: Spontaneous
  Country: US (occurrence: US)
  Receive Date: 20170504
  Receipt Date: 20170504
  Transmission Date: 20170830
  Serious: No
  Sender: FDA-Public Use
  Company Number: US-BAUSCH-BL-2016-018144

PATIENT
  Age: 23 Year
  Sex: Male

DRUGS (4)
  1. ZYRTEC [Concomitant]
     Active Substance: CETIRIZINE HYDROCHLORIDE
     Indication: PRODUCT USED FOR UNKNOWN INDICATION
  2. ALDARA [Suspect]
     Active Substance: IMIQUIMOD
     Indication: MOLLUSCUM CONTAGIOSUM
     Dosage: AT BED TIME 3 TIMES A WEEK WASHING THE AREA AFTER SIX HOURS
     Route: 061
     Dates: start: 20160712, end: 20160727
  3. SINGULAIR [Concomitant]
     Active Substance: MONTELUKAST SODIUM
     Indication: PRODUCT USED FOR UNKNOWN INDICATION
  4. ALBUTEROL. [Concomitant]
     Active Substance: ALBUTEROL
     Indication: PRODUCT USED FOR UNKNOWN INDICATION

REACTIONS (7)
  - Pyrexia [Unknown]
  - Chills [Unknown]
  - Application site pain [Unknown]
  - Myalgia [Unknown]
  - Asthenia [Unknown]
  - Application site scab [Unknown]
  - Off label use [Unknown]

NARRATIVE: CASE EVENT DATE: 201607
